FAERS Safety Report 6844974-8 (Version None)
Quarter: 2010Q3

REPORT INFORMATION
  Report Type: 
  Country: None (occurrence: None)
  Receive Date: 20100713
  Receipt Date: 20100702
  Transmission Date: 20110219
  Serious: Yes (Other)
  Sender: FDA-Public Use
  Company Number: RB-10738-2010

PATIENT
  Sex: Female

DRUGS (1)
  1. SUBOXONE [Suspect]
     Indication: DRUG DEPENDENCE
     Dosage: (8 MG QID SUBLINGUAL), (TAPERING DOSES SUBLINGUAL), (12 MG SUBLINGUAL)
     Route: 060
     Dates: end: 20070101

REACTIONS (5)
  - ANHEDONIA [None]
  - CEREBRAL HAEMORRHAGE [None]
  - PSYCHIATRIC SYMPTOM [None]
  - QUALITY OF LIFE DECREASED [None]
  - SELF ESTEEM DECREASED [None]
